FAERS Safety Report 10950978 (Version 1)
Quarter: 2015Q1

REPORT INFORMATION
  Report Type: Spontaneous
  Country: US (occurrence: None)
  Receive Date: 20150226
  Receipt Date: 20150226
  Transmission Date: 20150721
  Serious: No
  Sender: FDA-Public Use
  Company Number: TAP2004Q01628

PATIENT
  Age: 24 Year
  Sex: Male
  Weight: 90.72 kg

DRUGS (1)
  1. PREVACID [Suspect]
     Active Substance: LANSOPRAZOLE
     Indication: GASTRIC ULCER
     Dosage: 30 MG, 1 IN 1 D, PER ORAL
     Route: 048
     Dates: start: 20041123, end: 20041128

REACTIONS (4)
  - Dyspnoea [None]
  - Anaphylactic shock [None]
  - Oropharyngeal swelling [None]
  - Urticaria [None]

NARRATIVE: CASE EVENT DATE: 20041128
